FAERS Safety Report 5305005-4 (Version None)
Quarter: 2007Q2

REPORT INFORMATION
  Report Type: 
  Country: None (occurrence: None)
  Receive Date: 20070423
  Receipt Date: 20070411
  Transmission Date: 20071010
  Serious: Yes (Death)
  Sender: FDA-Public Use
  Company Number: ZA-PFIZER INC-2007030585

PATIENT
  Sex: Female

DRUGS (1)
  1. ATARAX [Suspect]
     Dosage: DAILY DOSE:50MG-FREQ:ONCE
     Route: 058

REACTIONS (2)
  - DISSEMINATED INTRAVASCULAR COAGULATION [None]
  - DRUG EXPOSURE DURING PREGNANCY [None]
